FAERS Safety Report 11742179 (Version 1)
Quarter: 2015Q4

REPORT INFORMATION
  Report Type: Spontaneous
  Country: None (occurrence: None)
  Receive Date: 20151113
  Receipt Date: 20151113
  Transmission Date: 20160304
  Serious: Yes (Life-Threatening, Hospitalization)
  Sender: FDA-Public Use
  Company Number: None

PATIENT
  Age: 16 Year
  Sex: Female

DRUGS (9)
  1. CYCLOBENZAPRINE [Concomitant]
     Active Substance: CYCLOBENZAPRINE
  2. BACLOFEN. [Concomitant]
     Active Substance: BACLOFEN
  3. MIRALAX [Concomitant]
     Active Substance: POLYETHYLENE GLYCOL 3350
  4. ARIPIPRAZOLE. [Suspect]
     Active Substance: ARIPIPRAZOLE
     Indication: DEPRESSION
     Route: 048
     Dates: start: 20151105, end: 20151111
  5. ARIPIPRAZOLE. [Suspect]
     Active Substance: ARIPIPRAZOLE
     Indication: AGITATION
     Route: 048
     Dates: start: 20151105, end: 20151111
  6. LORAZEPAM. [Concomitant]
     Active Substance: LORAZEPAM
  7. CITALOPRAM [Concomitant]
     Active Substance: CITALOPRAM HYDROBROMIDE
  8. ARIPIPRAZOLE. [Suspect]
     Active Substance: ARIPIPRAZOLE
     Indication: ANXIETY
     Route: 048
     Dates: start: 20151105, end: 20151111
  9. NEXIUM [Concomitant]
     Active Substance: ESOMEPRAZOLE MAGNESIUM

REACTIONS (8)
  - Tachycardia [None]
  - Pallor [None]
  - Mucosal discolouration [None]
  - Tachypnoea [None]
  - Stridor [None]
  - Dyspnoea [None]
  - Respiratory distress [None]
  - Respiratory arrest [None]

NARRATIVE: CASE EVENT DATE: 20151111
